FAERS Safety Report 20291016 (Version 3)
Quarter: 2022Q2

REPORT INFORMATION
  Report Type: Spontaneous
  Country: ID (occurrence: ID)
  Receive Date: 20220104
  Receipt Date: 20220504
  Transmission Date: 20220721
  Serious: Yes (Hospitalization, Other)
  Sender: FDA-Public Use
  Company Number: ID-PFIZER INC-202101828735

PATIENT
  Age: 52 Year
  Sex: Male

DRUGS (3)
  1. IBRANCE [Suspect]
     Active Substance: PALBOCICLIB
     Indication: Breast cancer
     Dosage: 125 MG, 1X/DAY, FOR 21 DAYS FOLLOWED BY 7 DAYS OFF TREATMENT
     Route: 048
  2. IBRANCE [Suspect]
     Active Substance: PALBOCICLIB
     Dosage: 100 MG, 1X/DAY, FOR 3 WEEKS OF CONSUMPTION: 1 WEEK OFF
  3. ARCOXIA [Concomitant]
     Active Substance: ETORICOXIB
     Indication: Pain
     Dosage: UNK

REACTIONS (6)
  - Haemoglobin decreased [Unknown]
  - White blood cell count decreased [Unknown]
  - Neutropenia [Unknown]
  - Urinary retention [Unknown]
  - Constipation [Unknown]
  - General physical health deterioration [Unknown]
